FAERS Safety Report 6226539-4 (Version None)
Quarter: 2009Q2

REPORT INFORMATION
  Report Type: 
  Country: None (occurrence: None)
  Receive Date: 20090612
  Receipt Date: 20090518
  Transmission Date: 20091009
  Serious: No
  Sender: FDA-Public Use
  Company Number: US-ABBOTT-09P-163-0574094-00

PATIENT
  Sex: Female
  Weight: 66.738 kg

DRUGS (4)
  1. HUMIRA [Suspect]
     Indication: CROHN'S DISEASE
     Dosage: LOADING DOSE
     Route: 058
     Dates: start: 20090410, end: 20090410
  2. HUMIRA [Suspect]
     Route: 058
     Dates: start: 20090417, end: 20090417
  3. IMURAN [Concomitant]
     Indication: CROHN'S DISEASE
  4. ASACOL [Concomitant]
     Indication: CROHN'S DISEASE

REACTIONS (3)
  - PRURITUS [None]
  - RASH PAPULAR [None]
  - TENDERNESS [None]
